FAERS Safety Report 8418105-7 (Version None)
Quarter: 2012Q2

REPORT INFORMATION
  Report Type: 
  Country: None (occurrence: None)
  Receive Date: 20120531
  Receipt Date: 20120516
  Transmission Date: 20120825
  Serious: Yes (Hospitalization, Other)
  Sender: FDA-Public Use
  Company Number: 2012SGN00224

PATIENT
  Sex: Female

DRUGS (5)
  1. ADCETRIS [Suspect]
     Indication: LYMPHOMA
     Dates: start: 20101201
  2. CYCLOPHOSPHAMIDE [Concomitant]
  3. PROCARBAZINE HYDROCHLORIDE [Concomitant]
  4. PREDNISOLONE ACETATE [Concomitant]
  5. ETOPOSIDE [Concomitant]

REACTIONS (6)
  - RED BLOOD CELL SEDIMENTATION RATE INCREASED [None]
  - ALLERGIC RESPIRATORY SYMPTOM [None]
  - NIGHT SWEATS [None]
  - PYREXIA [None]
  - DRUG TOLERANCE DECREASED [None]
  - GRAFT VERSUS HOST DISEASE [None]
